FAERS Safety Report 18401686 (Version 1)
Quarter: 2020Q4

REPORT INFORMATION
  Report Type: Spontaneous
  Country: US (occurrence: US)
  Receive Date: 20201020
  Receipt Date: 20201020
  Transmission Date: 20210114
  Serious: Yes (Death)
  Sender: FDA-Public Use
  Company Number: US-MTPC-MTDA2020-0066905

PATIENT
  Sex: Female

DRUGS (2)
  1. RADICAVA [Suspect]
     Active Substance: EDARAVONE
     Dosage: 30MG/100 ML QD FOR 10 DAYS, FOLLOWED BY 14 DAYS OFF
     Route: 065
  2. RADICAVA [Suspect]
     Active Substance: EDARAVONE
     Indication: AMYOTROPHIC LATERAL SCLEROSIS
     Dosage: 30MG/100 ML QD FOR 14 DAYS, FOLLOWED BY 14 DAYS OFF
     Route: 065

REACTIONS (1)
  - Death [Fatal]
